FAERS Safety Report 5319653-9 (Version None)
Quarter: 2007Q2

REPORT INFORMATION
  Report Type: 
  Country: None (occurrence: None)
  Receive Date: 20070508
  Receipt Date: 20070503
  Transmission Date: 20071010
  Serious: Yes (Hospitalization)
  Sender: FDA-Public Use
  Company Number: SG-MERCK-0604SGP00002

PATIENT
  Age: 79 Year
  Sex: Female

DRUGS (2)
  1. FOSAMAX PLUS D [Suspect]
     Route: 048
     Dates: start: 20060301, end: 20060401
  2. FOSAMAX [Concomitant]
     Route: 048
     Dates: start: 19970101, end: 20060301

REACTIONS (1)
  - FEMUR FRACTURE [None]
